FAERS Safety Report 9339473 (Version 1)
Quarter: 2013Q2

REPORT INFORMATION
  Report Type: Spontaneous
  Country: US (occurrence: None)
  Receive Date: 20130607
  Receipt Date: 20130607
  Transmission Date: 20140414
  Serious: No
  Sender: FDA-Public Use
  Company Number: None

PATIENT
  Age: 8 Year
  Sex: Female
  Weight: 26.7 kg

DRUGS (2)
  1. LEVETIRACETAM [Suspect]
     Indication: CONVULSION
     Dosage: QAM
     Route: 048
     Dates: start: 201008, end: 201011
  2. LEVETIRACETAM [Suspect]
     Indication: EPILEPSY
     Dosage: QAM
     Route: 048
     Dates: start: 201008, end: 201011

REACTIONS (3)
  - Convulsion [None]
  - Condition aggravated [None]
  - Product substitution issue [None]
